FAERS Safety Report 15317205 (Version 2)
Quarter: 2018Q4

REPORT INFORMATION
  Report Type: Report from Study
  Country: US (occurrence: US)
  Receive Date: 20180824
  Receipt Date: 20181011
  Transmission Date: 20190204
  Serious: Yes (Other)
  Sender: FDA-Public Use
  Company Number: US-GILEAD-2018-0358769

PATIENT
  Age: 66 Year
  Sex: Female

DRUGS (1)
  1. AZTREONAM LYSINE [Suspect]
     Active Substance: AZTREONAM LYSINE
     Indication: PSEUDOMONAS INFECTION
     Dosage: 75 MG, UNK
     Route: 055
     Dates: end: 2018

REACTIONS (6)
  - Retching [Unknown]
  - Cough [Recovered/Resolved]
  - Speech disorder [Unknown]
  - Off label use [Unknown]
  - Oropharyngeal discomfort [Unknown]
  - Choking [Unknown]

NARRATIVE: CASE EVENT DATE: 201807
